FAERS Safety Report 14167258 (Version 6)
Quarter: 2025Q1

REPORT INFORMATION
  Report Type: Spontaneous
  Country: US (occurrence: US)
  Receive Date: 20171107
  Receipt Date: 20250107
  Transmission Date: 20250408
  Serious: Yes (Hospitalization, Disabling, Other)
  Sender: ELI LILLY AND COMPANY
  Company Number: US-ELI_LILLY_AND_COMPANY-US201710012150

PATIENT
  Age: 61 Year
  Sex: Female

DRUGS (8)
  1. HUMALOG [Suspect]
     Active Substance: INSULIN LISPRO
     Indication: Product used for unknown indication
     Dosage: 30 U, DAILY
     Route: 058
     Dates: start: 20230111
  2. HUMALOG [Suspect]
     Active Substance: INSULIN LISPRO
     Indication: Product used for unknown indication
     Dosage: 30 U, DAILY
     Route: 058
     Dates: start: 20230111
  3. HUMALOG [Suspect]
     Active Substance: INSULIN LISPRO
     Dosage: 36 U, DAILY
     Route: 058
  4. HUMALOG [Suspect]
     Active Substance: INSULIN LISPRO
     Dosage: 36 U, DAILY
     Route: 058
  5. HUMALOG [Suspect]
     Active Substance: INSULIN LISPRO
     Dosage: 12 U, TID (3 TIMES DAILY BEFORE MEALS)
     Route: 065
  6. HUMALOG [Suspect]
     Active Substance: INSULIN LISPRO
     Dosage: 12 U, TID (3 TIMES DAILY BEFORE MEALS)
     Route: 065
  7. HUMALOG KWIKPEN [Suspect]
     Active Substance: INSULIN LISPRO
     Indication: Product used for unknown indication
     Route: 065
  8. LANTUS [Concomitant]
     Active Substance: INSULIN GLARGINE
     Indication: Product used for unknown indication

REACTIONS (29)
  - Cerebrovascular accident [Recovering/Resolving]
  - Hip fracture [Recovering/Resolving]
  - Femur fracture [Recovering/Resolving]
  - Blood glucose increased [Recovering/Resolving]
  - Gait inability [Unknown]
  - Myocardial infarction [Unknown]
  - Hemiplegia [Recovering/Resolving]
  - Fall [Unknown]
  - Upper-airway cough syndrome [Not Recovered/Not Resolved]
  - Tooth infection [Recovering/Resolving]
  - Dizziness [Recovering/Resolving]
  - Tooth injury [Recovering/Resolving]
  - Blood pressure increased [Not Recovered/Not Resolved]
  - Stress [Unknown]
  - Ear discomfort [Recovering/Resolving]
  - Vision blurred [Recovering/Resolving]
  - Chest discomfort [Recovering/Resolving]
  - Toothache [Not Recovered/Not Resolved]
  - Presyncope [Recovering/Resolving]
  - Blood pressure increased [Recovered/Resolved]
  - Fall [Unknown]
  - Ankle fracture [Unknown]
  - Tooth infection [Recovered/Resolved]
  - Localised infection [Recovering/Resolving]
  - Asthenia [Recovering/Resolving]
  - Muscular weakness [Recovering/Resolving]
  - Asthenia [Recovering/Resolving]
  - Blood glucose decreased [Recovering/Resolving]
  - Intentional product misuse [Recovering/Resolving]

NARRATIVE: CASE EVENT DATE: 20170101
